FAERS Safety Report 7323085-1 (Version None)
Quarter: 2011Q1

REPORT INFORMATION
  Report Type: 
  Country: None (occurrence: None)
  Receive Date: 20110214
  Receipt Date: 20110210
  Transmission Date: 20110831
  Serious: Yes (Life-Threatening)
  Sender: FDA-Public Use
  Company Number: 2011SP006041

PATIENT
  Age: 1 Year
  Sex: Male

DRUGS (6)
  1. CEFTRIAXONE [Suspect]
     Indication: PRODUCT USED FOR UNKNOWN INDICATION
  2. ROCURONIUM BROMIDE [Suspect]
     Indication: PRODUCT USED FOR UNKNOWN INDICATION
     Dates: start: 20100923, end: 20100923
  3. SUXAMETHONIUM NOS (SUXAMETHONIUM) [Suspect]
     Indication: PRODUCT USED FOR UNKNOWN INDICATION
     Dosage: 10 MG, ONCE, IV
     Route: 042
     Dates: start: 20100923, end: 20100923
  4. DIAZEPAM [Suspect]
     Indication: PRODUCT USED FOR UNKNOWN INDICATION
     Dates: start: 20100923, end: 20100923
  5. THIOPENTONE SODIUM (THIOPENTAL SODIUM (00053402) [Suspect]
     Indication: PRODUCT USED FOR UNKNOWN INDICATION
     Dates: start: 20100923, end: 20100923
  6. FENTANYL [Suspect]
     Indication: PRODUCT USED FOR UNKNOWN INDICATION
     Dates: start: 20100923, end: 20100923

REACTIONS (3)
  - HYPERTHERMIA [None]
  - TACHYCARDIA [None]
  - CARBON DIOXIDE INCREASED [None]
